FAERS Safety Report 20761049 (Version 1)
Quarter: 2022Q2

REPORT INFORMATION
  Report Type: Other
  Country: PT (occurrence: PT)
  Receive Date: 20220428
  Receipt Date: 20220428
  Transmission Date: 20220721
  Serious: Yes (Other)
  Sender: FDA-Public Use
  Company Number: PT-CELLTRION INC.-2022PT005043

PATIENT

DRUGS (1)
  1. TRUXIMA [Suspect]
     Active Substance: RITUXIMAB-ABBS
     Indication: Product used for unknown indication
     Dosage: UNK
     Route: 042
     Dates: start: 20210930, end: 20210930

REACTIONS (3)
  - Tremor [Unknown]
  - Chills [Unknown]
  - Agitation [Unknown]

NARRATIVE: CASE EVENT DATE: 20210930
